FAERS Safety Report 5418231-0 (Version None)
Quarter: 2007Q3

REPORT INFORMATION
  Report Type: 
  Country: None (occurrence: None)
  Receive Date: 20070817
  Receipt Date: 20070808
  Transmission Date: 20080115
  Serious: Yes (Hospitalization)
  Sender: FDA-Public Use
  Company Number: HN-ROCHE-511124

PATIENT
  Age: 39 Year
  Sex: Male

DRUGS (1)
  1. BONIVA [Suspect]
     Indication: OSTEOPOROSIS
     Route: 048
     Dates: start: 20070622, end: 20070622

REACTIONS (4)
  - CONVULSION [None]
  - GLOMERULONEPHROPATHY [None]
  - HYPOCALCAEMIA [None]
  - OESOPHAGITIS [None]
